FAERS Safety Report 24113703 (Version 1)
Quarter: 2024Q3

REPORT INFORMATION
  Report Type: Report from Study
  Country: US (occurrence: US)
  Receive Date: 20240720
  Receipt Date: 20240720
  Transmission Date: 20241016
  Serious: Yes (Other)
  Sender: ABBVIE
  Company Number: US-ABBVIE-5842215

PATIENT
  Age: 77 Year
  Sex: Female

DRUGS (1)
  1. IMBRUVICA [Suspect]
     Active Substance: IBRUTINIB
     Indication: Chronic lymphocytic leukaemia
     Route: 048
     Dates: start: 20220228

REACTIONS (9)
  - Arterial occlusive disease [Unknown]
  - Rash macular [Unknown]
  - Pain [Unknown]
  - Muscle spasms [Unknown]
  - White blood cell count decreased [Unknown]
  - Onychoclasis [Unknown]
  - Skin haemorrhage [Unknown]
  - Contusion [Unknown]
  - Functional gastrointestinal disorder [Unknown]

NARRATIVE: CASE EVENT DATE: 20240201
